FAERS Safety Report 4411174-0 (Version None)
Quarter: 2004Q2

REPORT INFORMATION
  Report Type: 
  Country: None (occurrence: None)
  Receive Date: 20040630
  Receipt Date: 20040512
  Transmission Date: 20050107
  Serious: No
  Sender: FDA-Public Use
  Company Number: 04P-163-0260679-00

PATIENT
  Age: 74 Year
  Sex: Male
  Weight: 73.4827 kg

DRUGS (7)
  1. HUMIRA [Suspect]
     Indication: RHEUMATOID ARTHRITIS
     Dosage: 40 MG, 1 IN 2 WK SUBCUTANEOUS
     Route: 058
     Dates: start: 20040422
  2. NAPROXEN [Concomitant]
  3. FOLIC ACID [Concomitant]
  4. MULTIVITAMIN [Concomitant]
  5. PREDNISONE [Concomitant]
  6. CALCIUM [Concomitant]
  7. ASCORBIC ACID [Concomitant]

REACTIONS (1)
  - MICTURITION URGENCY [None]
